FAERS Safety Report 11292814 (Version 1)
Quarter: 2015Q2

REPORT INFORMATION
  Report Type: Spontaneous
  Country: US (occurrence: None)
  Receive Date: 20150623
  Receipt Date: 20150623
  Transmission Date: 20150821
  Serious: Yes (Other)
  Sender: FDA-Public Use
  Company Number: RB-66975-2014

PATIENT
  Age: 30 Year
  Sex: Female

DRUGS (1)
  1. MUCINEX DM [Suspect]
     Active Substance: DEXTROMETHORPHAN HYDROBROMIDE\GUAIFENESIN
     Indication: PRODUCTIVE COUGH
     Route: 048
     Dates: start: 20140617

REACTIONS (8)
  - Expired product administered [None]
  - Drug ineffective [None]
  - Dizziness [None]
  - Hallucination, auditory [None]
  - Confusional state [None]
  - Fear [None]
  - Poor quality sleep [None]
  - Nausea [None]
